FAERS Safety Report 4378148-X (Version None)
Quarter: 2004Q2

REPORT INFORMATION
  Report Type: 
  Country: None (occurrence: None)
  Receive Date: 20040616
  Receipt Date: 20040225
  Transmission Date: 20050107
  Serious: Yes (Other)
  Sender: FDA-Public Use
  Company Number: PHEH2004US02607

PATIENT
  Sex: Female

DRUGS (4)
  1. DIOVAN [Suspect]
     Indication: HYPERTENSION
     Dosage: 80 MG, QD
  2. DIOVAN [Suspect]
     Dosage: 320 MG DAILY
     Route: 048
  3. TRILEPTAL [Concomitant]
     Indication: PARTIAL SEIZURES
     Dosage: 600 MG, BID
     Route: 048
  4. DIOVAN HCT [Concomitant]

REACTIONS (8)
  - BLOOD CHLORIDE DECREASED [None]
  - BLOOD POTASSIUM INCREASED [None]
  - BLOOD PRESSURE FLUCTUATION [None]
  - BLOOD SODIUM DECREASED [None]
  - BLOOD UREA DECREASED [None]
  - CONSTIPATION [None]
  - DRUG INEFFECTIVE [None]
  - HYPONATRAEMIA [None]
